FAERS Safety Report 8513428-5 (Version None)
Quarter: 2012Q3

REPORT INFORMATION
  Report Type: 
  Country: None (occurrence: None)
  Receive Date: 20120717
  Receipt Date: 20120710
  Transmission Date: 20120928
  Serious: Yes (Hospitalization)
  Sender: FDA-Public Use
  Company Number: US-BIOGENIDEC-2012BI024706

PATIENT
  Age: 67 Year
  Sex: Female

DRUGS (1)
  1. AVONEX [Suspect]
     Indication: MULTIPLE SCLEROSIS
     Route: 030
     Dates: start: 20020630

REACTIONS (11)
  - URINARY INCONTINENCE [None]
  - BODY TEMPERATURE INCREASED [None]
  - DYSPNOEA [None]
  - BALANCE DISORDER [None]
  - ABDOMINAL DISTENSION [None]
  - POOR VENOUS ACCESS [None]
  - FLUID INTAKE REDUCED [None]
  - WEIGHT DECREASED [None]
  - BLOOD URINE PRESENT [None]
  - DEHYDRATION [None]
  - URINARY TRACT INFECTION [None]
